FAERS Safety Report 8334370-9 (Version None)
Quarter: 2012Q2

REPORT INFORMATION
  Report Type: 
  Country: None (occurrence: None)
  Receive Date: 20120503
  Receipt Date: 20120424
  Transmission Date: 20120825
  Serious: Yes (Other)
  Sender: FDA-Public Use
  Company Number: US-ELI_LILLY_AND_COMPANY-US201202007703

PATIENT
  Sex: Male
  Weight: 107.3 kg

DRUGS (1)
  1. CIALIS [Suspect]
     Indication: ERECTILE DYSFUNCTION
     Dosage: 5 MG, UNK
     Route: 048
     Dates: start: 20111215, end: 20120215

REACTIONS (1)
  - OPTIC NEUROPATHY [None]
